FAERS Safety Report 9181478 (Version 2)
Quarter: 2013Q2

REPORT INFORMATION
  Report Type: Spontaneous
  Country: US (occurrence: US)
  Receive Date: 20130322
  Receipt Date: 20130424
  Transmission Date: 20140414
  Serious: No
  Sender: FDA-Public Use
  Company Number: US-PFIZER INC-2013092600

PATIENT
  Sex: Female

DRUGS (1)
  1. GEMFIBROZIL [Suspect]
     Dosage: 1200 MG, DAILY (2 TABLETS A DAY)

REACTIONS (1)
  - Therapeutic response unexpected [Unknown]
